FAERS Safety Report 7339439-3 (Version None)
Quarter: 2011Q1

REPORT INFORMATION
  Report Type: 
  Country: None (occurrence: None)
  Receive Date: 20110308
  Receipt Date: 20101217
  Transmission Date: 20110831
  Serious: No
  Sender: FDA-Public Use
  Company Number: US-AMGEN-USASP2010009929

PATIENT
  Age: 68 Year
  Sex: Female

DRUGS (8)
  1. PROLIA [Suspect]
     Indication: PRODUCT USED FOR UNKNOWN INDICATION
  2. ADVAIR [Concomitant]
  3. METHOTREXATE [Concomitant]
     Indication: RHEUMATOID ARTHRITIS
  4. HUMIRA [Concomitant]
  5. PROLIA [Suspect]
     Indication: OSTEOPOROSIS POSTMENOPAUSAL
     Dosage: 60 MG, UNK
     Dates: start: 20100826
  6. PREDNISONE TAB [Concomitant]
     Indication: RHEUMATOID ARTHRITIS
  7. ENBREL [Suspect]
     Indication: RHEUMATOID ARTHRITIS
     Dosage: UNK
     Dates: start: 20060101
  8. CALCIUM [Concomitant]
     Dates: start: 20100826

REACTIONS (12)
  - BACK PAIN [None]
  - CONSTIPATION [None]
  - ARTHRALGIA [None]
  - BLOOD CHOLESTEROL INCREASED [None]
  - FLATULENCE [None]
  - PAIN IN JAW [None]
  - PAIN IN EXTREMITY [None]
  - CHEST PAIN [None]
  - BONE PAIN [None]
  - DYSPNOEA [None]
  - SKIN WRINKLING [None]
  - URINARY TRACT INFECTION [None]
